FAERS Safety Report 10395336 (Version 2)
Quarter: 2014Q3

REPORT INFORMATION
  Report Type: Spontaneous
  Country: US (occurrence: US)
  Receive Date: 20140820
  Receipt Date: 20140820
  Transmission Date: 20150326
  Serious: No
  Sender: FDA-Public Use
  Company Number: US-PFIZER INC-2014210089

PATIENT
  Age: 68 Year
  Sex: Female

DRUGS (6)
  1. OXYCODONE HYDROCHLORIDE. [Suspect]
     Active Substance: OXYCODONE HYDROCHLORIDE
     Indication: PAIN
     Dosage: 10-20 MG EVERY 6 HOURS AS NEEDED
  2. OXYCODONE HYDROCHLORIDE. [Suspect]
     Active Substance: OXYCODONE HYDROCHLORIDE
     Dosage: 2-3 TABS Q 4 HOURS PRN
  3. FENTANYL. [Suspect]
     Active Substance: FENTANYL
     Indication: BACK PAIN
     Dosage: 12.5 UG, PER 72 HOURS
     Route: 061
  4. FENTANYL. [Suspect]
     Active Substance: FENTANYL
     Dosage: 50 UG PER 72 HOURS
     Route: 061
  5. FENTANYL. [Suspect]
     Active Substance: FENTANYL
     Indication: GROIN PAIN
     Dosage: 25 UG, PER 72 HOURS
     Route: 061
  6. FENTANYL. [Suspect]
     Active Substance: FENTANYL
     Dosage: 100 UG, PER 72 HOURS
     Route: 061

REACTIONS (1)
  - Drug ineffective [Unknown]
